FAERS Safety Report 17649349 (Version 7)
Quarter: 2021Q2

REPORT INFORMATION
  Report Type: Report from Study
  Country: CO (occurrence: CO)
  Receive Date: 20200409
  Receipt Date: 20210623
  Transmission Date: 20210716
  Serious: Yes (Death, Hospitalization, Other)
  Sender: FDA-Public Use
  Company Number: CO-ASTELLAS-2019US004255

PATIENT
  Age: 66 Year
  Sex: Female

DRUGS (10)
  1. PREDNISOLONE. [Concomitant]
     Active Substance: PREDNISOLONE
     Indication: STEROID THERAPY
     Dosage: UNK UNK, UNKNOWN FREQ.
     Route: 048
  2. LEVOTHYROXINE. [Concomitant]
     Active Substance: LEVOTHYROXINE
     Indication: HYPOTHYROIDISM
     Dosage: UNK UNK, UNKNOWN FREQ.
     Route: 048
  3. PRAZOSIN. [Concomitant]
     Active Substance: PRAZOSIN
     Indication: HYPERTENSION
     Dosage: UNK UNK, UNKNOWN FREQ.
     Route: 048
  4. TACROLIMUS. [Suspect]
     Active Substance: TACROLIMUS
     Route: 048
     Dates: start: 20201120
  5. TACROLIMUS. [Suspect]
     Active Substance: TACROLIMUS
     Route: 048
  6. MYCOPHENOLATE [Concomitant]
     Active Substance: MYCOPHENOLIC ACID
     Indication: IMMUNOSUPPRESSANT DRUG THERAPY
     Dosage: UNK UNK, UNKNOWN FREQ.
     Route: 048
  7. TACROLIMUS. [Suspect]
     Active Substance: TACROLIMUS
     Dosage: 7MG OR 8MG, UNKNOWN FREQ.
     Route: 048
     Dates: start: 20190106
  8. TACROLIMUS. [Suspect]
     Active Substance: TACROLIMUS
     Indication: RENAL TRANSPLANT
     Dosage: 12 MG, ONCE DAILY (2 CAPSULES OF 5 MG AND 2 CAPSULES OF 1 MG)
     Route: 048
     Dates: start: 20181116
  9. TACROLIMUS. [Suspect]
     Active Substance: TACROLIMUS
     Dosage: 3 MG, ONCE DAILY (3 CAPSULES OF 1 MG)
     Route: 048
     Dates: start: 202001, end: 20201103
  10. RANITIDINE. [Concomitant]
     Active Substance: RANITIDINE
     Indication: GASTROINTESTINAL DISORDER PROPHYLAXIS
     Dosage: UNK UNK, UNKNOWN FREQ.
     Route: 048

REACTIONS (14)
  - Illness [Unknown]
  - Tremor [Recovered/Resolved]
  - Blood glucose increased [Recovering/Resolving]
  - Blood creatinine increased [Recovered/Resolved]
  - Product availability issue [Unknown]
  - Aphthous ulcer [Recovered/Resolved]
  - Immunosuppressant drug level increased [Unknown]
  - Product supply issue [Unknown]
  - COVID-19 [Fatal]
  - Malnutrition [Unknown]
  - Secondary immunodeficiency [Recovering/Resolving]
  - Hypophagia [Unknown]
  - Gait disturbance [Unknown]
  - Dysphagia [Unknown]

NARRATIVE: CASE EVENT DATE: 201811
